FAERS Safety Report 6895165-6 (Version None)
Quarter: 2010Q3

REPORT INFORMATION
  Report Type: 
  Country: None (occurrence: None)
  Receive Date: 20100802
  Receipt Date: 20100720
  Transmission Date: 20110219
  Serious: Yes (Hospitalization)
  Sender: FDA-Public Use
  Company Number: KZ-SANOFI-AVENTIS-2010SA039167

PATIENT
  Age: 42 Year
  Sex: Male
  Weight: 88.9 kg

DRUGS (5)
  1. GLIMEPIRIDE/METFORMIN [Suspect]
     Indication: TYPE 2 DIABETES MELLITUS
     Dosage: 2MG GLIMEPIRIDE/500MG METFORMIN
     Dates: start: 20100519
  2. GLIMEPIRIDE/METFORMIN [Suspect]
  3. TRENTAL [Suspect]
     Route: 040
     Dates: start: 20100519, end: 20100529
  4. ALL OTHER THERAPEUTIC PRODUCTS [Suspect]
     Route: 030
     Dates: start: 20100519, end: 20100529
  5. ACTOVEGIN 10%-NACL [Concomitant]
     Route: 030
     Dates: start: 20100519, end: 20100529

REACTIONS (3)
  - ASTHENIA [None]
  - DYSPNOEA [None]
  - GASTROINTESTINAL HAEMORRHAGE [None]
